FAERS Safety Report 9297035 (Version 4)
Quarter: 2014Q1

REPORT INFORMATION
  Report Type: Spontaneous
  Country: AU (occurrence: AU)
  Receive Date: 20130519
  Receipt Date: 20140106
  Transmission Date: 20141002
  Serious: Yes (Hospitalization, Other)
  Sender: FDA-Public Use
  Company Number: AU-AMGEN-AUSSP2013021178

PATIENT
  Age: 49 Year
  Sex: Male
  Weight: 109 kg

DRUGS (8)
  1. ARANESP [Suspect]
     Indication: PRODUCT USED FOR UNKNOWN INDICATION
     Dosage: 40 MUG, QWK
     Route: 042
  2. CINACALCET HCL [Concomitant]
     Indication: PRODUCT USED FOR UNKNOWN INDICATION
     Dosage: 30 MG, QD
     Route: 065
  3. ASPIRIN [Concomitant]
     Dosage: 100 MG, QD
  4. ATORVASTATIN [Concomitant]
     Dosage: 20 MG, QD
  5. CAL-SUP [Concomitant]
     Dosage: 500 MG, TID WITH FOOD
  6. CALCITRIOL [Concomitant]
     Dosage: 2 MUG, Q2WK POST DIALYSIS
  7. FOLIC ACID [Concomitant]
     Dosage: 5 MG, QD
  8. MULTIVITAMINS W/MINERALS [Concomitant]
     Dosage: 1 TABLET, QD

REACTIONS (13)
  - Aplasia pure red cell [Unknown]
  - Anaemia [Unknown]
  - Renal transplant [Unknown]
  - Therapeutic response decreased [Unknown]
  - Post procedural haemorrhage [Unknown]
  - Nephrectomy [Unknown]
  - Bradycardia [Unknown]
  - Hepatitis B antibody positive [Unknown]
  - Arteriovenous fistula aneurysm [Unknown]
  - Bone metabolism disorder [Unknown]
  - Hepatic steatosis [Unknown]
  - Hepatomegaly [Unknown]
  - Gallbladder disorder [Unknown]
